FAERS Safety Report 9595917 (Version 2)
Quarter: 2013Q4

REPORT INFORMATION
  Report Type: Spontaneous
  Country: US (occurrence: US)
  Receive Date: 20131004
  Receipt Date: 20131014
  Transmission Date: 20140711
  Serious: Yes (Death, Congenital Anomaly)
  Sender: FDA-Public Use
  Company Number: US-009507513-1310USA001147

PATIENT
  Sex: 0

DRUGS (5)
  1. ISENTRESS [Suspect]
     Route: 064
  2. PREZISTA [Suspect]
     Route: 064
  3. TENOFOVIR DISOPROXIL FUMARATE [Suspect]
     Route: 064
  4. TRIZIVIR [Suspect]
     Route: 064
  5. NORVIR [Suspect]
     Route: 064

REACTIONS (7)
  - Ventricular septal defect [Fatal]
  - Pulmonary hypoplasia [Fatal]
  - Congenital aortic anomaly [Fatal]
  - Spine malformation [Unknown]
  - Oesophageal atresia [Unknown]
  - Hemivertebra [Unknown]
  - Foetal exposure during pregnancy [Recovered/Resolved]
